FAERS Safety Report 5393402-0 (Version None)
Quarter: 2007Q3

REPORT INFORMATION
  Report Type: 
  Country: None (occurrence: None)
  Receive Date: 20070723
  Receipt Date: 20070720
  Transmission Date: 20080115
  Serious: Yes (Other)
  Sender: FDA-Public Use
  Company Number: NL-BAYER-200712240GDS

PATIENT
  Age: 36 Year
  Sex: Male

DRUGS (2)
  1. AVELOX [Suspect]
     Indication: TRACHEITIS
     Dosage: TOTAL DAILY DOSE: 400 MG  UNIT DOSE: 400 MG
     Route: 048
     Dates: start: 20070116, end: 20070116
  2. CODEINE SUL TAB [Concomitant]
     Indication: DRUG USE FOR UNKNOWN INDICATION
     Route: 065
     Dates: start: 20070116

REACTIONS (2)
  - MACULAR OEDEMA [None]
  - VISION BLURRED [None]
